FAERS Safety Report 6636022-X (Version None)
Quarter: 2010Q1

REPORT INFORMATION
  Report Type: 
  Country: None (occurrence: None)
  Receive Date: 20100316
  Receipt Date: 20100303
  Transmission Date: 20100710
  Serious: Yes (Disabling, Other)
  Sender: FDA-Public Use
  Company Number: PHHY2010ZA07365

PATIENT
  Sex: Female
  Weight: 99 kg

DRUGS (2)
  1. ZOMETA [Suspect]
     Indication: METASTASES TO BONE
     Dosage: 6 G, QMO
     Route: 042
     Dates: start: 20050401, end: 20090501
  2. ARIMIDEX [Concomitant]
     Dosage: 1 G, UNK
     Dates: start: 20050901

REACTIONS (7)
  - BONE DISORDER [None]
  - HYPOPHAGIA [None]
  - LYMPHADENOPATHY [None]
  - ORAL DISORDER [None]
  - OSTEONECROSIS [None]
  - PAIN [None]
  - SWELLING [None]
